FAERS Safety Report 7555517-8 (Version None)
Quarter: 2011Q2

REPORT INFORMATION
  Report Type: 
  Country: None (occurrence: None)
  Receive Date: 20110617
  Receipt Date: 20050221
  Transmission Date: 20111010
  Serious: Yes (Hospitalization, Other)
  Sender: FDA-Public Use
  Company Number: PHHO2004JP18503

PATIENT
  Sex: Female

DRUGS (7)
  1. JUVELA [Concomitant]
  2. DASEN [Concomitant]
  3. PROCYLIN [Concomitant]
  4. METOPROLOL TARTRATE [Concomitant]
  5. METHYCOBAL [Concomitant]
  6. SELBEX [Concomitant]
  7. LOCHOLEST [Suspect]
     Indication: HYPERCHOLESTEROLAEMIA
     Dosage: 20 MG/DAILY
     Route: 048
     Dates: start: 20010403

REACTIONS (3)
  - CONNECTIVE TISSUE INFLAMMATION [None]
  - DIABETES MELLITUS [None]
  - CELLULITIS [None]
